FAERS Safety Report 6044325-5 (Version None)
Quarter: 2009Q1

REPORT INFORMATION
  Report Type: 
  Country: None (occurrence: None)
  Receive Date: 20090120
  Receipt Date: 20081015
  Transmission Date: 20090719
  Serious: No
  Sender: FDA-Public Use
  Company Number: US-BAYER-200814098BCC

PATIENT
  Age: 73 Year
  Sex: Female
  Weight: 66 kg

DRUGS (2)
  1. ALEVE [Suspect]
     Indication: OEDEMA PERIPHERAL
     Dosage: AS USED: 220 MG  UNIT DOSE: 220 MG
     Dates: start: 20081014
  2. ZOLPIDEM [Concomitant]

REACTIONS (2)
  - CONFUSIONAL STATE [None]
  - SOMNOLENCE [None]
